FAERS Safety Report 4497733-8 (Version None)
Quarter: 2004Q4

REPORT INFORMATION
  Report Type: 
  Country: None (occurrence: None)
  Receive Date: 20041104
  Receipt Date: 20041027
  Transmission Date: 20050328
  Serious: Yes (Other)
  Sender: FDA-Public Use
  Company Number: HQWYE146227OCT04

PATIENT
  Age: 74 Year
  Sex: Male

DRUGS (4)
  1. PROTIUM (PANTOPRAZOLE, INJECTION) [Suspect]
     Indication: GASTRIC ULCER
     Dosage: SOME DOSE FORM SOMETIMES
     Route: 042
     Dates: start: 20040915, end: 20040917
  2. BENDROFLUAZIDE (BENDROFLUMETHIAZIDE) [Concomitant]
  3. LANSOPRAZOLE [Concomitant]
  4. ADALAT [Concomitant]

REACTIONS (2)
  - AXILLARY VEIN THROMBOSIS [None]
  - OEDEMA PERIPHERAL [None]
